FAERS Safety Report 6404326 (Version 3)
Quarter: 2013Q4

REPORT INFORMATION
  Report Type: Spontaneous
  Country: AU (occurrence: AU)
  Receive Date: 20070831
  Receipt Date: 20131202
  Transmission Date: 20140711
  Serious: Yes (Hospitalization)
  Sender: FDA-Public Use
  Company Number: AU-PFIZER INC-2007069626

PATIENT
  Age: 58 Year
  Sex: Female

DRUGS (7)
  1. LYRICA [Suspect]
     Indication: NECK PAIN
     Dosage: AT NIGHT
     Dates: start: 20070716, end: 20070820
  2. LYRICA [Suspect]
     Indication: BACK PAIN
  3. CLONAZEPAM [Suspect]
  4. DIAZEPAM [Suspect]
  5. STILNOX [Concomitant]
  6. PANADOL [Concomitant]
  7. NUROFEN [Concomitant]

REACTIONS (8)
  - Drug withdrawal syndrome [Unknown]
  - Muscle tightness [Unknown]
  - Muscular weakness [Unknown]
  - Hypoaesthesia [Unknown]
  - Bladder disorder [Unknown]
  - Speech disorder [Unknown]
  - Insomnia [Unknown]
  - Malaise [Unknown]
